FAERS Safety Report 12476329 (Version 3)
Quarter: 2016Q3

REPORT INFORMATION
  Report Type: Spontaneous
  Country: NL (occurrence: NL)
  Receive Date: 20160617
  Receipt Date: 20160815
  Transmission Date: 20161109
  Serious: Yes (Hospitalization)
  Sender: FDA-Public Use
  Company Number: NL-PFIZER INC-2016300561

PATIENT
  Age: 27 Year
  Sex: Male
  Weight: 94 kg

DRUGS (9)
  1. OXAZEPAM. [Concomitant]
     Active Substance: OXAZEPAM
     Dosage: 10 MG, 1X/DAY
     Route: 048
  2. FENTANYL. [Concomitant]
     Active Substance: FENTANYL
     Dosage: 1 DF, UNK
     Route: 062
  3. PANTOPRAZOL [Concomitant]
     Active Substance: PANTOPRAZOLE SODIUM
     Dosage: 40 MG, 1X/DAY
     Route: 042
  4. OXYCODON [Interacting]
     Active Substance: OXYCODONE
     Indication: BACK PAIN
     Dosage: 20 MG, 3X/DAY
     Route: 048
     Dates: start: 2014, end: 20160526
  5. VENLAFAXINE HCL [Suspect]
     Active Substance: VENLAFAXINE HYDROCHLORIDE
     Indication: DEPRESSION
     Dosage: 75 MG, 1X/DAY (EXTRA INFO: ON 16MAY2016 75MG, TWO TIMES A DAY)
     Route: 048
     Dates: start: 20160512, end: 20160526
  6. MOVICOLON [Concomitant]
     Active Substance: POLYETHYLENE GLYCOL 3350\POTASSIUM CHLORIDE\SODIUM BICARBONATE\SODIUM CHLORIDE
     Dosage: 1 DF, 1X/DAY
     Route: 048
  7. PREGABALINE [Concomitant]
     Active Substance: PREGABALIN
     Dosage: 150 MG, 2X/DAY
     Route: 048
  8. CIPROFLOXACINE [Concomitant]
     Active Substance: CIPROFLOXACIN
     Dosage: 500 MG, 2X/DAY
     Route: 048
  9. FRAXIPARINE (NADROPARIN CALCIUM) [Concomitant]
     Active Substance: NADROPARIN CALCIUM
     Dosage: 0.3 ML, 1X/DAY
     Route: 058

REACTIONS (2)
  - Drug interaction [Recovering/Resolving]
  - Leukoencephalopathy [Recovering/Resolving]

NARRATIVE: CASE EVENT DATE: 20160514
